FAERS Safety Report 7116994-X (Version None)
Quarter: 2010Q4

REPORT INFORMATION
  Report Type: 
  Country: None (occurrence: None)
  Receive Date: 20101122
  Receipt Date: 20101115
  Transmission Date: 20110411
  Serious: No
  Sender: FDA-Public Use
  Company Number: US-B.I. PHARMACEUTICALS,INC./RIDGEFIELD-2010-BP-12822BP

PATIENT
  Sex: Male

DRUGS (3)
  1. PRADAXA [Suspect]
  2. PANTZA [Concomitant]
     Indication: CROHN'S DISEASE
  3. REMICADE [Concomitant]
     Indication: CROHN'S DISEASE
     Route: 042

REACTIONS (2)
  - ADVERSE DRUG REACTION [None]
  - CROHN'S DISEASE [None]
